FAERS Safety Report 21524538 (Version 3)
Quarter: 2022Q4

REPORT INFORMATION
  Report Type: Other
  Country: JP (occurrence: JP)
  Receive Date: 20221030
  Receipt Date: 20221213
  Transmission Date: 20230113
  Serious: Yes (Hospitalization)
  Sender: FDA-Public Use
  Company Number: JP-CHUGAI-2022042188

PATIENT
  Age: 27 Year
  Sex: Male
  Weight: 43 kg

DRUGS (14)
  1. RISDIPLAM [Suspect]
     Active Substance: RISDIPLAM
     Indication: Spinal muscular atrophy
     Route: 048
  2. RISDIPLAM [Suspect]
     Active Substance: RISDIPLAM
     Route: 048
     Dates: start: 20211021, end: 20221026
  3. ZINC [Suspect]
     Active Substance: ZINC
     Indication: Zinc deficiency
     Dosage: UNK
     Route: 065
     Dates: start: 20220426, end: 20221026
  4. MIYA-BM [Concomitant]
     Active Substance: CLOSTRIDIUM BUTYRICUM SPORES STRAIN M-55
     Dosage: UNK
     Route: 048
  5. FAMOTIDINE [Concomitant]
     Active Substance: FAMOTIDINE
     Dosage: UNK
     Route: 065
     Dates: end: 20221026
  6. MOSAPRIDE CITRATE [Concomitant]
     Active Substance: MOSAPRIDE CITRATE
     Dosage: UNK
     Route: 048
  7. BIFIDOBACTERIUM SPP. [Concomitant]
     Active Substance: BIFIDOBACTERIUM SPP.
     Dosage: UNK
     Route: 048
  8. CARBOCYSTEINE [Concomitant]
     Active Substance: CARBOCYSTEINE
     Dosage: UNK
     Route: 065
  9. RIKKOSAN [Concomitant]
     Dosage: UNK
     Route: 048
  10. LEVOCARNITINE [Concomitant]
     Active Substance: LEVOCARNITINE
     Dosage: UNK
     Route: 048
  11. CANDESARTAN [Concomitant]
     Active Substance: CANDESARTAN
     Dosage: UNK
     Route: 048
  12. CLARITHROMYCIN [Concomitant]
     Active Substance: CLARITHROMYCIN
     Dosage: UNK
     Route: 065
  13. XALATAN [Concomitant]
     Active Substance: LATANOPROST
     Dosage: UNK
     Route: 047
  14. AZOPT [BRINZOLAMIDE] [Concomitant]
     Dosage: UNK
     Route: 047

REACTIONS (8)
  - Infection [Unknown]
  - Neutrophil count decreased [Recovered/Resolved]
  - Anaemia macrocytic [Recovered/Resolved]
  - Zinc deficiency [Unknown]
  - Diarrhoea [Recovered/Resolved]
  - Blood copper decreased [Unknown]
  - Diverticulitis [Unknown]
  - Tachycardia [Recovered/Resolved]

NARRATIVE: CASE EVENT DATE: 20220101
